FAERS Safety Report 17981566 (Version 2)
Quarter: 2020Q3

REPORT INFORMATION
  Report Type: Spontaneous
  Country: US (occurrence: US)
  Receive Date: 20200706
  Receipt Date: 20200820
  Transmission Date: 20201103
  Serious: No
  Sender: FDA-Public Use
  Company Number: US-ASTRAZENECA-2020SE83944

PATIENT
  Sex: Male
  Weight: 127 kg

DRUGS (2)
  1. NOVOLOG [Concomitant]
     Active Substance: INSULIN ASPART
     Dosage: 30 UNITS IN THE MORNING AND 20 UNITS AT NIGHT
     Route: 065
  2. BYDUREON BCISE [Suspect]
     Active Substance: EXENATIDE
     Indication: TYPE 2 DIABETES MELLITUS
     Route: 058

REACTIONS (3)
  - Weight decreased [Not Recovered/Not Resolved]
  - Device leakage [Unknown]
  - Drug dose omission by device [Not Recovered/Not Resolved]
